FAERS Safety Report 4471935-9 (Version None)
Quarter: 2004Q4

REPORT INFORMATION
  Report Type: 
  Country: None (occurrence: None)
  Receive Date: 20041007
  Receipt Date: 20040921
  Transmission Date: 20050328
  Serious: Yes (Disabling, Other)
  Sender: FDA-Public Use
  Company Number: 8007455

PATIENT
  Age: 74 Year
  Sex: Female

DRUGS (5)
  1. KEPPRA [Suspect]
     Indication: EPILEPSY
     Dosage: 250 MG 3/D
     Dates: start: 20030101
  2. KEPPRA [Suspect]
     Indication: EPILEPSY
  3. CARBAMAZEPINE [Suspect]
     Dosage: 100 MG 4/D
  4. CARBAMAZEPINE [Suspect]
     Dosage: 100 MG 1/D
  5. DIAZEPAM [Suspect]

REACTIONS (8)
  - ATAXIA [None]
  - CONDITION AGGRAVATED [None]
  - CONVULSION [None]
  - EMOTIONAL DISTRESS [None]
  - EPILEPSY [None]
  - FALL [None]
  - FRACTURE [None]
  - MACULAR DEGENERATION [None]
